FAERS Safety Report 7901141-4 (Version None)
Quarter: 2011Q4

REPORT INFORMATION
  Report Type: 
  Country: None (occurrence: None)
  Receive Date: 20111108
  Receipt Date: 20111102
  Transmission Date: 20120403
  Serious: Yes (Other)
  Sender: FDA-Public Use
  Company Number: US-PFIZER INC-2011268641

PATIENT
  Sex: Female

DRUGS (1)
  1. EFFEXOR [Suspect]
     Indication: DEPRESSION
     Dosage: UNK
     Dates: start: 20090101, end: 20111001

REACTIONS (4)
  - WITHDRAWAL SYNDROME [None]
  - MEMORY IMPAIRMENT [None]
  - IMPAIRED REASONING [None]
  - DEPRESSION [None]
